FAERS Safety Report 19441803 (Version 1)
Quarter: 2021Q2

REPORT INFORMATION
  Report Type: Spontaneous
  Country: CA (occurrence: CA)
  Receive Date: 20210621
  Receipt Date: 20210621
  Transmission Date: 20210717
  Serious: Yes (Other)
  Sender: FDA-Public Use
  Company Number: CA-ROCHE-2853248

PATIENT
  Age: 58 Year
  Sex: Male

DRUGS (15)
  1. MORPHINE [Concomitant]
     Active Substance: MORPHINE
  2. PREDNISONE. [Concomitant]
     Active Substance: PREDNISONE
  3. RANITIDINE. [Concomitant]
     Active Substance: RANITIDINE
  4. SPIRIVA [Concomitant]
     Active Substance: TIOTROPIUM BROMIDE MONOHYDRATE
  5. METHYLPREDNISOLONE SODIUM SUCCINATE. [Concomitant]
     Active Substance: METHYLPREDNISOLONE SODIUM SUCCINATE
     Indication: PREMEDICATION
     Route: 042
  6. VENTOLIN [Concomitant]
     Active Substance: ALBUTEROL SULFATE
  7. VITAMIN D [COLECALCIFEROL] [Concomitant]
     Active Substance: CHOLECALCIFEROL
  8. BENADRYL [Concomitant]
     Active Substance: DIPHENHYDRAMINE HYDROCHLORIDE
     Indication: PREMEDICATION
     Route: 048
  9. CYANOCOBALAMIN. [Concomitant]
     Active Substance: CYANOCOBALAMIN
  10. RITUXIMAB. [Suspect]
     Active Substance: RITUXIMAB
     Indication: RHEUMATOID ARTHRITIS
     Route: 041
  11. TYLENOL [Concomitant]
     Active Substance: ACETAMINOPHEN
     Indication: PREMEDICATION
     Route: 048
  12. IRON [Concomitant]
     Active Substance: IRON
  13. QUETIAPINE. [Concomitant]
     Active Substance: QUETIAPINE
  14. CALCIUM [Concomitant]
     Active Substance: CALCIUM
  15. CITALOPRAM [Concomitant]
     Active Substance: CITALOPRAM HYDROBROMIDE

REACTIONS (2)
  - Nutritional condition abnormal [Unknown]
  - Malaise [Unknown]
